FAERS Safety Report 17306709 (Version 2)
Quarter: 2020Q1

REPORT INFORMATION
  Report Type: Report from Study
  Country: None (occurrence: US)
  Receive Date: 20200123
  Receipt Date: 20200220
  Transmission Date: 20200409
  Serious: Yes (Hospitalization)
  Sender: FDA-Public Use
  Company Number: US-ABBVIE-20P-163-3244584-00

PATIENT
  Age: 91 Year
  Sex: Male

DRUGS (2)
  1. IMBRUVICA [Suspect]
     Active Substance: IBRUTINIB
     Route: 048
  2. IMBRUVICA [Suspect]
     Active Substance: IBRUTINIB
     Indication: LYMPHOCYTIC LEUKAEMIA
     Route: 048

REACTIONS (4)
  - Faecaloma [Unknown]
  - Balance disorder [Unknown]
  - Fall [Unknown]
  - Scratch [Unknown]

NARRATIVE: CASE EVENT DATE: 201912
